FAERS Safety Report 21853882 (Version 1)
Quarter: 2023Q1

REPORT INFORMATION
  Report Type: Spontaneous
  Country: US (occurrence: None)
  Receive Date: 20230111
  Receipt Date: 20230111
  Transmission Date: 20230418
  Serious: Yes (Other)
  Sender: FDA-Public Use
  Company Number: None

PATIENT
  Age: 20 Year
  Weight: 22.5 kg

DRUGS (1)
  1. ARISTADA [Suspect]
     Active Substance: ARIPIPRAZOLE LAUROXIL
     Route: 030

REACTIONS (4)
  - Device difficult to use [None]
  - Needle issue [None]
  - Pain [None]
  - Product use issue [None]

NARRATIVE: CASE EVENT DATE: 20221214
